FAERS Safety Report 21572173 (Version 4)
Quarter: 2023Q1

REPORT INFORMATION
  Report Type: Spontaneous
  Country: CO (occurrence: CO)
  Receive Date: 20221109
  Receipt Date: 20230125
  Transmission Date: 20230418
  Serious: No
  Sender: FDA-Public Use
  Company Number: CO-PFIZER INC-PV202200095510

PATIENT
  Age: 12 Year
  Sex: Female

DRUGS (1)
  1. GENOTROPIN [Suspect]
     Active Substance: SOMATROPIN
     Indication: Growth hormone deficiency
     Dosage: 1.8 MG
     Route: 058

REACTIONS (3)
  - Intentional device misuse [Unknown]
  - Prescription drug used without a prescription [Unknown]
  - Device malfunction [Unknown]

NARRATIVE: CASE EVENT DATE: 20210101
